FAERS Safety Report 6906683-6 (Version None)
Quarter: 2010Q3

REPORT INFORMATION
  Report Type: 
  Country: None (occurrence: None)
  Receive Date: 20100804
  Receipt Date: 20100726
  Transmission Date: 20110219
  Serious: Yes (Hospitalization)
  Sender: FDA-Public Use
  Company Number: DE-AMGEN-QUU428057

PATIENT
  Age: 17 Year
  Sex: Male

DRUGS (4)
  1. ENBREL [Suspect]
     Indication: JUVENILE ARTHRITIS
     Dosage: UNKNOWN DOSE STARTING FROM UNKNOWN DATE, DISCONTINUED IN MAR-2009
     Route: 058
     Dates: end: 20090301
  2. SULFASALAZINE [Concomitant]
     Indication: JUVENILE ARTHRITIS
  3. METHOTREXATE [Concomitant]
     Indication: JUVENILE ARTHRITIS
     Dosage: UNKNOWN STARTING DOSE, 17.5 MG PER WEEK IN MAR-2009, REDUCED TO 10 MG PER WEEK IN 2009
     Dates: start: 20090301
  4. METHOTREXATE [Concomitant]
     Dates: start: 20090101

REACTIONS (1)
  - CROHN'S DISEASE [None]
